FAERS Safety Report 17556648 (Version 2)
Quarter: 2020Q1

REPORT INFORMATION
  Report Type: Report from Study
  Country: None (occurrence: US)
  Receive Date: 20200318
  Receipt Date: 20200327
  Transmission Date: 20200409
  Serious: Yes (Other)
  Sender: FDA-Public Use
  Company Number: US-ABBVIE-20K-163-3325294-00

PATIENT
  Age: 67 Year
  Sex: Male

DRUGS (3)
  1. VENCLEXTA [Suspect]
     Active Substance: VENETOCLAX
     Route: 048
     Dates: start: 20200316, end: 20200322
  2. VENCLEXTA [Suspect]
     Active Substance: VENETOCLAX
     Dosage: 100MG FOR 7 DAYS
     Route: 048
     Dates: start: 20200323
  3. VENCLEXTA [Suspect]
     Active Substance: VENETOCLAX
     Indication: MYELODYSPLASTIC SYNDROME
     Route: 048
     Dates: start: 20200309, end: 20200315

REACTIONS (4)
  - Platelet count decreased [Recovering/Resolving]
  - Decreased activity [Unknown]
  - Feeling abnormal [Unknown]
  - Haemoglobin decreased [Recovering/Resolving]

NARRATIVE: CASE EVENT DATE: 202003
